FAERS Safety Report 4774461-2 (Version None)
Quarter: 2005Q3

REPORT INFORMATION
  Report Type: 
  Country: None (occurrence: None)
  Receive Date: 20050920
  Receipt Date: 20050920
  Transmission Date: 20060218
  Serious: No
  Sender: FDA-Public Use
  Company Number: None

PATIENT
  Age: 21 Year
  Sex: Female
  Weight: 81.6475 kg

DRUGS (6)
  1. FENTANYL [Suspect]
     Indication: BACK PAIN
     Dosage: Q 3 DAYS
     Dates: start: 20050722, end: 20050816
  2. SEROQUEL [Concomitant]
  3. METFORMIN HCL [Concomitant]
  4. AMBIEN [Concomitant]
  5. CHLORAL HYDRATE [Concomitant]
  6. NAPROXEN [Concomitant]

REACTIONS (3)
  - ALANINE AMINOTRANSFERASE INCREASED [None]
  - ASPARTATE AMINOTRANSFERASE INCREASED [None]
  - NAUSEA [None]
